FAERS Safety Report 17742468 (Version 1)
Quarter: 2020Q2

REPORT INFORMATION
  Report Type: Spontaneous
  Country: NL (occurrence: NL)
  Receive Date: 20200505
  Receipt Date: 20200505
  Transmission Date: 20200714
  Serious: Yes (Other)
  Sender: FDA-Public Use
  Company Number: NL-SUN PHARMACEUTICAL INDUSTRIES LTD-2020R1-245310

PATIENT
  Age: 18 Year
  Sex: Male

DRUGS (3)
  1. METHOTREXATE. [Suspect]
     Active Substance: METHOTREXATE
     Indication: OSTEOSARCOMA METASTATIC
     Dosage: UNK
     Route: 065
  2. DOXORUBICIN [Interacting]
     Active Substance: DOXORUBICIN
     Indication: OSTEOSARCOMA METASTATIC
     Dosage: UNK
     Route: 065
  3. CISPLATIN. [Interacting]
     Active Substance: CISPLATIN
     Indication: OSTEOSARCOMA METASTATIC
     Dosage: UNK
     Route: 065

REACTIONS (2)
  - Toxicity to various agents [Unknown]
  - Drug interaction [Unknown]
